FAERS Safety Report 8473499-1 (Version None)
Quarter: 2012Q2

REPORT INFORMATION
  Report Type: 
  Country: None (occurrence: None)
  Receive Date: 20120625
  Receipt Date: 20120625
  Transmission Date: 20120825
  Serious: Yes (Other)
  Sender: FDA-Public Use
  Company Number: None

PATIENT
  Age: 61 Year
  Sex: Female
  Weight: 77.5651 kg

DRUGS (1)
  1. CHERATUSSIN AC [Suspect]
     Indication: BRONCHITIS
     Dosage: 2 TEASPOONS EVERY 4 HOURS PO
     Route: 048
     Dates: start: 20111121, end: 20111123

REACTIONS (2)
  - TREMOR [None]
  - GRIP STRENGTH DECREASED [None]
